FAERS Safety Report 20739979 (Version 6)
Quarter: 2022Q3

REPORT INFORMATION
  Report Type: Report from Study
  Country: CA (occurrence: CA)
  Receive Date: 20220422
  Receipt Date: 20220707
  Transmission Date: 20221026
  Serious: Yes (Hospitalization, Other)
  Sender: FDA-Public Use
  Company Number: CA-TAKEDA-2022TUS026023

PATIENT
  Age: 22 Year
  Sex: Female

DRUGS (9)
  1. VEDOLIZUMAB [Suspect]
     Active Substance: VEDOLIZUMAB
     Indication: Colitis ulcerative
     Dosage: 300 MILLIGRAM
     Route: 042
     Dates: start: 20220224
  2. VEDOLIZUMAB [Suspect]
     Active Substance: VEDOLIZUMAB
     Dosage: 300 MILLIGRAM, Q4WEEKS
     Route: 042
     Dates: start: 20220531, end: 20220531
  3. MESALAMINE [Concomitant]
     Active Substance: MESALAMINE
     Dosage: UNK
     Dates: start: 2014
  4. PREDNISONE [Concomitant]
     Active Substance: PREDNISONE
     Dosage: 40 MILLIGRAM, Q8WEEKS
     Dates: start: 20211220
  5. PREDNISONE [Concomitant]
     Active Substance: PREDNISONE
     Dosage: 40 MILLIGRAM, Q8WEEKS
     Dates: start: 20220210
  6. ZIPRASIDONE [Concomitant]
     Active Substance: ZIPRASIDONE
     Dosage: 5 MILLIGRAM
  7. Salofalk [Concomitant]
     Dosage: UNK
  8. CALCIUM [Concomitant]
     Active Substance: CALCIUM
     Dosage: 500 MILLIGRAM, BID
  9. CORTISONE [Concomitant]
     Active Substance: CORTISONE
     Dosage: UNK

REACTIONS (9)
  - Colitis ulcerative [Unknown]
  - Haematochezia [Not Recovered/Not Resolved]
  - Defaecation urgency [Unknown]
  - Abdominal pain [Unknown]
  - Faeces soft [Unknown]
  - Frequent bowel movements [Unknown]
  - Diarrhoea [Not Recovered/Not Resolved]
  - Drug ineffective [Unknown]
  - Off label use [Unknown]

NARRATIVE: CASE EVENT DATE: 20220418
